FAERS Safety Report 4420076-5 (Version None)
Quarter: 2004Q3

REPORT INFORMATION
  Report Type: 
  Country: None (occurrence: None)
  Receive Date: 20040804
  Receipt Date: 20040708
  Transmission Date: 20050211
  Serious: Yes (Hospitalization)
  Sender: FDA-Public Use
  Company Number: FR_040704427

PATIENT
  Age: 38 Year
  Sex: Male

DRUGS (4)
  1. ZYPREXA [Suspect]
     Indication: ABNORMAL BEHAVIOUR
     Dosage: 5 MG/2 DAY
     Dates: start: 20040101
  2. RIVOTRIL (CLONAZEPAM) [Concomitant]
  3. LETICUR (TROPATEPINE HYDROCHLORIDE) [Concomitant]
  4. FORLAX (MACROGOL) [Concomitant]

REACTIONS (2)
  - ELECTROENCEPHALOGRAM ABNORMAL [None]
  - STATUS EPILEPTICUS [None]
